FAERS Safety Report 12597656 (Version 1)
Quarter: 2016Q3

REPORT INFORMATION
  Report Type: Spontaneous
  Country: GB (occurrence: GB)
  Receive Date: 20160727
  Receipt Date: 20160727
  Transmission Date: 20161109
  Serious: Yes (Other)
  Sender: FDA-Public Use
  Company Number: GB-MYLANLABS-2016M1029851

PATIENT

DRUGS (26)
  1. MOVELAT                            /00479601/ [Concomitant]
     Dosage: UNK (MASSAGE INTO AFFECTED AREA UP TO 4 TIMES A DAY)
     Route: 061
     Dates: start: 20151027
  2. LANSOPRAZOLE. [Concomitant]
     Active Substance: LANSOPRAZOLE
     Dosage: 1 DF, QD (BEFORE BREAKFAST)
     Dates: start: 20150225
  3. SALIVA SUBSTITUTE [Concomitant]
     Active Substance: CARBOXYMETHYLCELLULOSE SODIUM\SORBINICATE
     Dosage: UNK
     Dates: start: 20140523, end: 20160429
  4. CO-AMOXICLAV                       /00756801/ [Concomitant]
     Active Substance: AMOXICILLIN\CLAVULANIC ACID
     Dosage: 1 DF, TID (ANTIBIOTIC IN RESERVE)
     Dates: start: 20120801
  5. COCODAMOL [Concomitant]
     Active Substance: ACETAMINOPHEN\CODEINE PHOSPHATE
     Dosage: UNK (ONE TO TWO FOUR TIMES DAILY)
     Dates: start: 20120801
  6. FORMOTEROL FUMARATE [Concomitant]
     Active Substance: FORMOTEROL FUMARATE
     Dosage: 1 DF, BID (INCREASE TO 2 DOSES..)
     Route: 055
     Dates: start: 20141203
  7. OXYCODONE HYDROCHLORIDE. [Concomitant]
     Active Substance: OXYCODONE HYDROCHLORIDE
     Dosage: 2.5 ML, UNK (AS DIRECTED BY HOSPITAL)
     Dates: start: 20160609
  8. ADCAL                              /07357001/ [Concomitant]
     Dosage: 2 DF, QD
     Dates: start: 20120801
  9. BECLOMETASONE [Concomitant]
     Active Substance: BECLOMETHASONE DIPROPIONATE
     Dosage: UNK (ONE TO TWO SPRAYS INTO EACH NOSTRIL TWICE DAILY)
     Dates: start: 20130501
  10. DIETHYLAMINE SALICYLATE [Concomitant]
     Active Substance: DIETHYLAMINE SALICYLATE
     Dosage: 1 DF, UNK
     Route: 061
     Dates: start: 20160706
  11. DOMPERIDONE [Concomitant]
     Active Substance: DOMPERIDONE
     Indication: MALAISE
     Dosage: 1 DF, UNK
     Dates: start: 20160706
  12. ERYTHROMYCIN. [Concomitant]
     Active Substance: ERYTHROMYCIN
     Dosage: 1 DF, BID (LONG TERM)
     Dates: start: 20120801
  13. MUCODYNE [Concomitant]
     Active Substance: CARBOCYSTEINE
     Indication: PRODUCTIVE COUGH
     Dosage: 2 DF, UNK (TWICE OR THREE TIMES A DAY)
     Dates: start: 20141203
  14. NEDOCROMIL SODIUM. [Concomitant]
     Active Substance: NEDOCROMIL SODIUM
     Indication: HYPERSENSITIVITY
     Dosage: 1 GTT, BID
     Dates: start: 20150324, end: 20160429
  15. SYMBICORT [Concomitant]
     Active Substance: BUDESONIDE\FORMOTEROL FUMARATE DIHYDRATE
     Dosage: 1 DF, BID
     Route: 055
     Dates: start: 20120801
  16. TIOTROPIUM [Concomitant]
     Active Substance: TIOTROPIUM
     Dosage: 1 DF, QD
     Dates: start: 20140723
  17. LAXIDO                             /06401201/ [Concomitant]
     Active Substance: POLYETHYLENE GLYCOL 3350\POTASSIUM CHLORIDE\SODIUM BICARBONATE\SODIUM CHLORIDE
     Dosage: 1 DF, UNK (AFTER MEALS FOR BOWELS)
     Dates: start: 20151125
  18. PREDNISOLONE. [Concomitant]
     Active Substance: PREDNISOLONE
     Indication: ASTHMA
     Dosage: 6 DF, QD (FOR 2 WEEKS)
     Dates: start: 20120801
  19. TERBUTALINE [Concomitant]
     Active Substance: TERBUTALINE
     Dosage: 1 DF, UNK (UP TO FOUR TIMES A DAY)
     Route: 055
     Dates: start: 20120801
  20. BUTRANS [Concomitant]
     Active Substance: BUPRENORPHINE
     Dosage: 1 DF, QW (REPLACE EVERY 7 DAYS AS DIRECTED)
     Dates: start: 20160511, end: 20160609
  21. CETIRIZINE [Concomitant]
     Active Substance: CETIRIZINE HYDROCHLORIDE
     Indication: SEASONAL ALLERGY
     Dosage: UNK (ONE DAILY OR TWICE A DAY)
     Dates: start: 20130626
  22. LONGTEC [Concomitant]
     Active Substance: OXYCODONE HYDROCHLORIDE
     Dosage: 1 DF, BID
     Dates: start: 20160609
  23. UNIPHYLLIN [Concomitant]
     Active Substance: THEOPHYLLINE ANHYDROUS
     Dosage: 1 DF, UNK
     Dates: start: 20141127
  24. IBANDRONATE [Suspect]
     Active Substance: IBANDRONATE SODIUM
     Dosage: UNK
     Dates: start: 20120801
  25. QUININE [Concomitant]
     Active Substance: QUININE
     Indication: MUSCLE SPASMS
     Dosage: 1 DF, UNK (FOR 2 WEEKS)
     Dates: start: 20120801
  26. VITAMINS NOS [Concomitant]
     Active Substance: VITAMINS
     Dosage: 1 DF, QD (AS A TONIC)
     Dates: start: 20120801

REACTIONS (1)
  - Osteoporosis [Recovered/Resolved with Sequelae]

NARRATIVE: CASE EVENT DATE: 20160708
